FAERS Safety Report 7838362-5 (Version None)
Quarter: 2011Q4

REPORT INFORMATION
  Report Type: 
  Country: None (occurrence: None)
  Receive Date: 20111024
  Receipt Date: 20111011
  Transmission Date: 20120403
  Serious: Yes (Hospitalization)
  Sender: FDA-Public Use
  Company Number: US-GILEAD-2010-0030709

PATIENT

DRUGS (2)
  1. TRIMETHOPRIM + SULFAMETHOXAZOLE [Concomitant]
     Indication: PROPHYLAXIS
  2. TENOFOVIR DISOPROXIL FUMARATE [Suspect]
     Dates: start: 20090723, end: 20100527

REACTIONS (15)
  - ACUTE PRERENAL FAILURE [None]
  - HYPOPHAGIA [None]
  - DECREASED APPETITE [None]
  - ABDOMINAL PAIN LOWER [None]
  - ORTHOSTATIC HYPOTENSION [None]
  - HYPOTENSION [None]
  - HYPOAESTHESIA [None]
  - PROSTATIC CYST [None]
  - DEHYDRATION [None]
  - ACUTE HIV INFECTION [None]
  - PARAESTHESIA [None]
  - PROSTATOMEGALY [None]
  - HAEMOGLOBIN DECREASED [None]
  - PALPITATIONS [None]
  - GASTROENTERITIS [None]
